FAERS Safety Report 9580152 (Version 2)
Quarter: 2013Q4

REPORT INFORMATION
  Report Type: Spontaneous
  Country: IL (occurrence: IL)
  Receive Date: 20131002
  Receipt Date: 20131002
  Transmission Date: 20140711
  Serious: Yes (Hospitalization, Other)
  Sender: FDA-Public Use
  Company Number: IL-INCYTE CORPORATION-2013IN001996

PATIENT
  Sex: Female

DRUGS (2)
  1. JAKAVI [Suspect]
     Dosage: 15 MG, UNK
     Route: 048
  2. JAKAVI [Suspect]
     Dosage: 5 MG, UNK
     Route: 048

REACTIONS (4)
  - Pulmonary embolism [Unknown]
  - Deep vein thrombosis [Unknown]
  - Acute leukaemia [Unknown]
  - Thrombocytopenia [Unknown]
